FAERS Safety Report 8239934-9 (Version None)
Quarter: 2012Q1

REPORT INFORMATION
  Report Type: 
  Country: None (occurrence: None)
  Receive Date: 20120327
  Receipt Date: 20120327
  Transmission Date: 20120608
  Serious: No
  Sender: FDA-Public Use
  Company Number: None

PATIENT
  Sex: Female

DRUGS (1)
  1. XELODA [Suspect]
     Dosage: 1500MG TWICE DAILY PO
     Route: 048
     Dates: start: 20120307, end: 20120321

REACTIONS (4)
  - PAIN IN EXTREMITY [None]
  - BLISTER [None]
  - SKIN DISCOLOURATION [None]
  - STOMATITIS [None]
